FAERS Safety Report 7165162-4 (Version None)
Quarter: 2010Q4

REPORT INFORMATION
  Report Type: 
  Country: None (occurrence: None)
  Receive Date: 20101215
  Receipt Date: 20091218
  Transmission Date: 20110411
  Serious: No
  Sender: FDA-Public Use
  Company Number: US-AMGEN-TCS381313

PATIENT

DRUGS (2)
  1. ENBREL [Suspect]
     Indication: PSORIATIC ARTHROPATHY
     Dosage: 50 MG, QWK
     Route: 058
     Dates: start: 20090819, end: 20090902
  2. REMICADE [Concomitant]
     Dosage: UNK UNK, UNK
     Dates: start: 20090101

REACTIONS (4)
  - AGITATION [None]
  - ASTHENOPIA [None]
  - FATIGUE [None]
  - HEADACHE [None]
